FAERS Safety Report 6532391-X (Version None)
Quarter: 2010Q1

REPORT INFORMATION
  Report Type: 
  Country: None (occurrence: None)
  Receive Date: 20100108
  Receipt Date: 20100102
  Transmission Date: 20100710
  Serious: Yes (Hospitalization)
  Sender: FDA-Public Use
  Company Number: US-AMGEN-QUU383302

PATIENT
  Sex: Female

DRUGS (1)
  1. ENBREL [Suspect]
     Indication: PSORIASIS
     Route: 058
     Dates: start: 20081101

REACTIONS (4)
  - ARTERIAL OCCLUSIVE DISEASE [None]
  - GINGIVAL DISORDER [None]
  - MUSCLE SPASMS [None]
  - PSORIASIS [None]
